FAERS Safety Report 8650216 (Version 3)
Quarter: 2012Q4

REPORT INFORMATION
  Report Type: 
  Country: US (occurrence: US)
  Receive Date: 20120705
  Receipt Date: 20120830
  Transmission Date: 20130627
  Serious: Yes (Other)
  Sender: FDA-Public Use
  Company Number: US-PFIZER INC-2012159364

PATIENT
  Age: 57 Year
  Sex: Male

DRUGS (17)
  1. SUTENT [Suspect]
     Indication: RENAL CANCER
     Dosage: 50 mg, 1x/day, 4 wks on, 2 wks off
     Route: 048
     Dates: start: 20120411, end: 20120517
  2. ASPIRIN [Concomitant]
     Dosage: UNK
  3. METFORMIN [Concomitant]
  4. TORSEMIDE [Concomitant]
  5. DILTIAZEM [Concomitant]
  6. ALLOPURINOL [Concomitant]
  7. ATENOLOL [Concomitant]
  8. CITALOPRAM [Concomitant]
  9. PRAVASTATIN [Concomitant]
  10. DIGOXIN [Concomitant]
  11. COMPAZINE [Concomitant]
  12. LASIX [Concomitant]
  13. GLUCOPHAGE [Concomitant]
  14. CELEXA [Concomitant]
  15. HYDROCODONE [Concomitant]
  16. LANOXIN [Concomitant]
     Dosage: UNK
  17. WARFARIN [Concomitant]
     Dosage: UNK

REACTIONS (12)
  - Dyspnoea [Unknown]
  - Platelet count decreased [Unknown]
  - Oedema peripheral [Unknown]
  - Pneumothorax [Unknown]
  - Mucosal inflammation [Recovered/Resolved]
  - Decreased appetite [Recovered/Resolved]
  - Weight decreased [Recovered/Resolved]
  - Pharyngitis [Unknown]
  - Fall [Unknown]
  - Contusion [Unknown]
  - Oropharyngeal pain [Unknown]
  - Contusion [Unknown]
